FAERS Safety Report 14579268 (Version 3)
Quarter: 2018Q2

REPORT INFORMATION
  Report Type: Spontaneous
  Country: US (occurrence: US)
  Receive Date: 20180227
  Receipt Date: 20180411
  Transmission Date: 20180711
  Serious: No
  Sender: FDA-Public Use
  Company Number: US-LUNDBECK-DKLU2044525

PATIENT
  Age: 71 Year
  Sex: Female
  Weight: 81 kg

DRUGS (5)
  1. NORTHERA [Suspect]
     Active Substance: DROXIDOPA
     Route: 048
  2. SINEMET [Concomitant]
     Active Substance: CARBIDOPA\LEVODOPA
     Indication: PRODUCT USED FOR UNKNOWN INDICATION
     Route: 065
  3. NORTHERA [Suspect]
     Active Substance: DROXIDOPA
     Indication: PARKINSON^S DISEASE
     Dosage: SCHEDULE B AND TITRATING
     Route: 048
     Dates: start: 20180215
  4. NORTHERA [Suspect]
     Active Substance: DROXIDOPA
     Dosage: TAKE ACCORDING TO 48 HOUR TITRATION
     Route: 048
     Dates: start: 20180212
  5. NORTHERA [Suspect]
     Active Substance: DROXIDOPA
     Indication: ORTHOSTATIC HYPOTENSION
     Route: 048

REACTIONS (7)
  - Nausea [Unknown]
  - Memory impairment [Unknown]
  - Hypoaesthesia [Unknown]
  - Feeling abnormal [Unknown]
  - Nail discolouration [Unknown]
  - Poor peripheral circulation [Unknown]
  - Condition aggravated [Unknown]

NARRATIVE: CASE EVENT DATE: 20180315
